FAERS Safety Report 19389449 (Version 1)
Quarter: 2021Q2

REPORT INFORMATION
  Report Type: Spontaneous
  Country: AE (occurrence: AE)
  Receive Date: 20210608
  Receipt Date: 20210608
  Transmission Date: 20210717
  Serious: Yes (Hospitalization, Other)
  Sender: FDA-Public Use
  Company Number: AE-LUPIN PHARMACEUTICALS INC.-2021-08854

PATIENT
  Age: 69 Year
  Sex: Male

DRUGS (3)
  1. HYDROXYZINE [Suspect]
     Active Substance: HYDROXYZINE HYDROCHLORIDE
     Indication: INTENTIONAL OVERDOSE
     Dosage: UNK
     Route: 065
  2. LORAZEPAM. [Suspect]
     Active Substance: LORAZEPAM
     Indication: INTENTIONAL OVERDOSE
     Dosage: UNK
     Route: 065
  3. METOPROLOL TARTRATE. [Suspect]
     Active Substance: METOPROLOL TARTRATE
     Indication: INTENTIONAL OVERDOSE
     Dosage: 100 DOSAGE FORM (100 TABLETS OF 75 MG)
     Route: 048

REACTIONS (16)
  - Pulmonary oedema [Recovering/Resolving]
  - Mean arterial pressure decreased [Recovering/Resolving]
  - Metabolic acidosis [Recovering/Resolving]
  - Hypokinesia [Recovering/Resolving]
  - Intentional overdose [Unknown]
  - Heart rate decreased [Recovering/Resolving]
  - Blood pressure decreased [Recovering/Resolving]
  - Delirium [Recovering/Resolving]
  - Agitation [Recovering/Resolving]
  - Hypopnoea [Recovering/Resolving]
  - Coma [Recovering/Resolving]
  - Somnolence [Recovering/Resolving]
  - Atrioventricular block [Recovering/Resolving]
  - Acute kidney injury [Recovering/Resolving]
  - Ejection fraction decreased [Recovering/Resolving]
  - Poor peripheral circulation [Recovering/Resolving]
